FAERS Safety Report 4753436-3 (Version None)
Quarter: 2005Q3

REPORT INFORMATION
  Report Type: 
  Country: None (occurrence: None)
  Receive Date: 20050826
  Receipt Date: 20050823
  Transmission Date: 20060218
  Serious: Yes (Other)
  Sender: FDA-Public Use
  Company Number: TH-ROCHE-415058

PATIENT
  Age: 42 Year
  Sex: Male

DRUGS (1)
  1. PEGASYS [Suspect]
     Indication: HEPATITIS C
     Dosage: REPORTED AS ^PEGYLATED INTERFERON ALFA 2A^.
     Route: 058
     Dates: start: 20050808, end: 20050808

REACTIONS (4)
  - FACE OEDEMA [None]
  - NAUSEA [None]
  - RASH [None]
  - VOMITING [None]
